FAERS Safety Report 9460931 (Version 1)
Quarter: 2013Q3

REPORT INFORMATION
  Report Type: Spontaneous
  Country: CA (occurrence: CA)
  Receive Date: 20130816
  Receipt Date: 20130816
  Transmission Date: 20140515
  Serious: Yes (Hospitalization)
  Sender: FDA-Public Use
  Company Number: CA-ROCHE-1261988

PATIENT
  Age: 10 Month
  Sex: Male
  Weight: 6 kg

DRUGS (18)
  1. CELLCEPT [Suspect]
     Indication: PRODUCT USED FOR UNKNOWN INDICATION
     Dosage: THERAPY DURATION: 273.0 DAY
     Route: 050
  2. CELLCEPT [Suspect]
     Dosage: THERAPY DURATION: 32.0 DAYS
     Route: 050
  3. ARANESP [Concomitant]
     Route: 058
  4. CALCITRIOL [Concomitant]
     Route: 065
  5. CLOBAZAM [Concomitant]
     Route: 050
  6. DOMPERIDONE [Concomitant]
     Route: 048
  7. ENALAPRIL [Concomitant]
     Route: 050
  8. ENOXAPARIN [Concomitant]
     Route: 058
  9. FERROUS SULPHATE [Concomitant]
     Route: 050
  10. FOLIC ACID [Concomitant]
     Route: 048
  11. HYDROCHLOROTHIAZIDE/SPIRONOLACTONE [Concomitant]
     Route: 050
  12. KEPPRA [Concomitant]
     Route: 050
  13. LASIX [Concomitant]
     Route: 050
  14. OMEPRAZOLE [Concomitant]
     Route: 048
  15. POTASSIUM CHLORIDE [Concomitant]
     Route: 042
  16. SODIUM CHLORIDE [Concomitant]
     Route: 050
  17. TOPIRAMATE [Concomitant]
     Route: 050
  18. TACROLIMUS [Concomitant]
     Route: 050

REACTIONS (4)
  - Anaemia [Recovered/Resolved]
  - Blood product transfusion dependent [Recovered/Resolved]
  - Haemoglobin decreased [Recovered/Resolved]
  - Reticulocyte count abnormal [Recovered/Resolved]
